FAERS Safety Report 5368339-3 (Version None)
Quarter: 2007Q2

REPORT INFORMATION
  Report Type: 
  Country: None (occurrence: None)
  Receive Date: 20070622
  Receipt Date: 20070622
  Transmission Date: 20071010
  Serious: Yes (Other)
  Sender: FDA-Public Use
  Company Number: None

PATIENT
  Sex: Female
  Weight: 65.7716 kg

DRUGS (10)
  1. NORVASC [Suspect]
     Indication: HYPERTENSION
     Dates: start: 20061110, end: 20070410
  2. AMLODIPINE BESYLATE [Suspect]
     Indication: HYPERTENSION
     Dates: start: 20070411, end: 20070520
  3. LISINOPRIL [Concomitant]
  4. URSO 250 [Concomitant]
  5. TIMOLOL MALEATE [Concomitant]
  6. TYMOPTIC [Concomitant]
  7. AMBIEN [Concomitant]
  8. PROTONIX [Concomitant]
  9. PEPCID [Concomitant]
  10. CHLORAZEPATE [Concomitant]

REACTIONS (7)
  - CONDITION AGGRAVATED [None]
  - DISCOMFORT [None]
  - GASTRITIS [None]
  - GASTROINTESTINAL DISORDER [None]
  - GASTROOESOPHAGEAL REFLUX DISEASE [None]
  - OEDEMA [None]
  - OESOPHAGEAL DISORDER [None]
